FAERS Safety Report 7592682-0 (Version None)
Quarter: 2011Q2

REPORT INFORMATION
  Report Type: 
  Country: None (occurrence: None)
  Receive Date: 20110628
  Receipt Date: 20110615
  Transmission Date: 20111010
  Serious: Yes (Hospitalization)
  Sender: FDA-Public Use
  Company Number: 1000021625

PATIENT
  Age: 78 Year
  Sex: Male

DRUGS (3)
  1. MEMANTINE [Suspect]
     Indication: COGNITIVE DISORDER
     Dosage: 20 MG (10 MG, 2 IN 1 D), ORAL
     Route: 048
     Dates: start: 20100101, end: 20110614
  2. MEMANTINE [Suspect]
     Indication: COGNITIVE DISORDER
     Dosage: 20 MG (10 MG, 2 IN 1 D), ORAL
     Route: 048
     Dates: start: 20110615
  3. ARICEPT [Concomitant]

REACTIONS (2)
  - HICCUPS [None]
  - OFF LABEL USE [None]
